FAERS Safety Report 5788066-8 (Version None)
Quarter: 2008Q2

REPORT INFORMATION
  Report Type: 
  Country: None (occurrence: None)
  Receive Date: 20080623
  Receipt Date: 20080613
  Transmission Date: 20081010
  Serious: Yes (Other)
  Sender: FDA-Public Use
  Company Number: 163-21880-08060914

PATIENT
  Age: 73 Year
  Sex: Male

DRUGS (1)
  1. REVLIMID [Suspect]
     Indication: MULTIPLE MYELOMA
     Dosage: 15 MG, 21 DAY M, W, F, ORAL
     Route: 048
     Dates: start: 20080408, end: 20080523

REACTIONS (2)
  - HEART RATE IRREGULAR [None]
  - PALPITATIONS [None]
